FAERS Safety Report 4595964-X (Version None)
Quarter: 2005Q1

REPORT INFORMATION
  Report Type: 
  Country: None (occurrence: None)
  Receive Date: 20050302
  Receipt Date: 20050208
  Transmission Date: 20050727
  Serious: Yes (Other)
  Sender: FDA-Public Use
  Company Number: NZ-JNJFOC-20050205094

PATIENT
  Age: 17 Year
  Sex: Female

DRUGS (2)
  1. RISPERDAL [Suspect]
     Indication: MANIA
     Route: 049
  2. LORAZEPAM [Concomitant]

REACTIONS (1)
  - NEUTROPHIL COUNT DECREASED [None]
